FAERS Safety Report 5894229-3 (Version None)
Quarter: 2008Q3

REPORT INFORMATION
  Report Type: 
  Country: None (occurrence: None)
  Receive Date: 20080923
  Receipt Date: 20080312
  Transmission Date: 20090109
  Serious: No
  Sender: FDA-Public Use
  Company Number: US-ASTRAZENECA-2008UW04206

PATIENT
  Age: 68 Year
  Sex: Female
  Weight: 54.4 kg

DRUGS (10)
  1. SEROQUEL [Suspect]
     Indication: BIPOLAR I DISORDER
     Route: 048
     Dates: start: 20080223, end: 20080201
  2. SEROQUEL [Suspect]
     Route: 048
     Dates: start: 20080201
  3. LITHIUM CARBONATE [Concomitant]
  4. CYMBALTA [Concomitant]
  5. ZOCOR [Concomitant]
  6. CLONAZEPAM [Concomitant]
  7. VITAMIN TAB [Concomitant]
  8. FISH OIL [Concomitant]
  9. BETACAROTENE [Concomitant]
  10. ASPIRIN [Concomitant]

REACTIONS (11)
  - ADVERSE DRUG REACTION [None]
  - ANOREXIA [None]
  - DISORIENTATION [None]
  - EYE SWELLING [None]
  - FATIGUE [None]
  - FLUID OVERLOAD [None]
  - HANGOVER [None]
  - LETHARGY [None]
  - SOMNOLENCE [None]
  - SWELLING FACE [None]
  - VISION BLURRED [None]
